FAERS Safety Report 8978149 (Version 1)
Quarter: 2012Q4

REPORT INFORMATION
  Report Type: 
  Country: OM (occurrence: OM)
  Receive Date: 20121220
  Receipt Date: 20121220
  Transmission Date: 20130627
  Serious: Yes (Other)
  Sender: FDA-Public Use
  Company Number: PHHY2012OM115849

PATIENT
  Age: 22 Year
  Sex: Male

DRUGS (4)
  1. VORICONAZOLE [Suspect]
     Route: 048
  2. VALGANCICLOVIR [Concomitant]
     Indication: PROPHYLAXIS
  3. TAZOCIN [Concomitant]
  4. MEROPENEM [Concomitant]

REACTIONS (17)
  - Aneurysm [Recovering/Resolving]
  - Haematoma [Recovering/Resolving]
  - Sacroiliitis [Recovering/Resolving]
  - Arterial rupture [Recovering/Resolving]
  - Haemorrhage [Recovering/Resolving]
  - Soft tissue necrosis [Recovering/Resolving]
  - Zygomycosis [Recovering/Resolving]
  - Haematuria [Recovering/Resolving]
  - Haemoptysis [Recovering/Resolving]
  - Blood creatinine increased [Recovering/Resolving]
  - Transplant rejection [Recovering/Resolving]
  - Flank pain [Recovering/Resolving]
  - Abdominal pain [Recovering/Resolving]
  - Purulent discharge [Recovering/Resolving]
  - Pyrexia [Recovering/Resolving]
  - Kidney enlargement [Recovering/Resolving]
  - Leukocytosis [Recovering/Resolving]
